FAERS Safety Report 5739967-8 (Version None)
Quarter: 2008Q2

REPORT INFORMATION
  Report Type: 
  Country: None (occurrence: None)
  Receive Date: 20080513
  Receipt Date: 20080513
  Transmission Date: 20081010
  Serious: Yes (Death, Hospitalization)
  Sender: FDA-Public Use
  Company Number: None

PATIENT
  Age: 33 Year
  Sex: Female
  Weight: 74 kg

DRUGS (6)
  1. EPIVIR [Suspect]
     Indication: HIV INFECTION
     Dosage: 150 MG BID PO
     Route: 048
     Dates: start: 20051123, end: 20071203
  2. SUSTIVA [Suspect]
     Indication: HIV INFECTION
     Dosage: 600 MG QHS  PO
     Route: 048
     Dates: start: 20051123, end: 20071203
  3. ZERIT [Suspect]
     Indication: HIV INFECTION
     Dosage: 40 MG BD  PO
     Route: 048
     Dates: start: 20051123, end: 20070815
  4. RETROVIR [Suspect]
     Indication: HIV INFECTION
     Dosage: 300 MG BD PO
     Route: 048
     Dates: start: 20070815, end: 20071203
  5. VITAMIN [Concomitant]
  6. DEPO-PROVERA [Concomitant]

REACTIONS (5)
  - BLOOD CREATININE INCREASED [None]
  - BLOOD UREA DECREASED [None]
  - CEREBROVASCULAR ACCIDENT [None]
  - CONDITION AGGRAVATED [None]
  - NEUROPATHY PERIPHERAL [None]
